FAERS Safety Report 9025125 (Version 4)
Quarter: 2013Q3

REPORT INFORMATION
  Report Type: Spontaneous
  Country: US (occurrence: US)
  Receive Date: 20130122
  Receipt Date: 20130920
  Transmission Date: 20140515
  Serious: Yes (Hospitalization, Other)
  Sender: FDA-Public Use
  Company Number: US-009507513-1301USA010132

PATIENT
  Sex: Female
  Weight: 72.56 kg

DRUGS (5)
  1. FOSAMAX [Suspect]
     Indication: OSTEOPOROSIS
     Dosage: 70 MG, QW
     Route: 048
     Dates: start: 1995, end: 2008
  2. FOSAMAX [Suspect]
     Dosage: 10 MG, UNK
     Route: 048
     Dates: start: 1995, end: 2008
  3. HORMONES (UNSPECIFIED) [Concomitant]
     Dosage: UNK
     Dates: start: 1980, end: 2010
  4. VITAMINS (UNSPECIFIED) [Concomitant]
     Dosage: UNK, BID
     Dates: start: 2002
  5. CALCIUM (UNSPECIFIED) (+) VITAMIN D (UNSPECIFIED) [Concomitant]
     Dosage: 1000 MG, 1000 IU VIT D2
     Dates: start: 1999

REACTIONS (53)
  - Femur fracture [Unknown]
  - Open reduction of fracture [Unknown]
  - Open reduction of fracture [Unknown]
  - Femur fracture [Unknown]
  - Femur fracture [Unknown]
  - Surgery [Unknown]
  - Surgery [Unknown]
  - Surgery [Unknown]
  - Intervertebral disc operation [Unknown]
  - Intervertebral disc disorder [Unknown]
  - Intervertebral disc operation [Unknown]
  - Spinal laminectomy [Unknown]
  - Nerve compression [Unknown]
  - Cervical radiculopathy [Unknown]
  - Spinal fusion surgery [Unknown]
  - Spinal corpectomy [Unknown]
  - Spinal laminectomy [Unknown]
  - Facetectomy [Unknown]
  - Peripheral nerve decompression [Unknown]
  - Neck surgery [Unknown]
  - Knee operation [Unknown]
  - Hypertension [Not Recovered/Not Resolved]
  - Fracture nonunion [Unknown]
  - Fracture nonunion [Unknown]
  - Device failure [Unknown]
  - Fall [Unknown]
  - Back injury [Unknown]
  - Neck injury [Unknown]
  - Vitamin D deficiency [Unknown]
  - Tooth extraction [Unknown]
  - Knee operation [Unknown]
  - Medical device implantation [Unknown]
  - Hypercholesterolaemia [Unknown]
  - Drug administration error [Unknown]
  - Impaired healing [Unknown]
  - Impaired healing [Unknown]
  - Fall [Unknown]
  - Head injury [Unknown]
  - Fibrosis [Unknown]
  - Road traffic accident [Unknown]
  - Deep vein thrombosis [Unknown]
  - Ligament rupture [Unknown]
  - Device defective [Unknown]
  - Vertebral foraminal stenosis [Unknown]
  - Hysterectomy [Unknown]
  - Hernia repair [Unknown]
  - Appendicectomy [Unknown]
  - Electrocardiogram QRS complex abnormal [Unknown]
  - Large intestine polyp [Unknown]
  - Atrophic vulvovaginitis [Unknown]
  - Arthralgia [Unknown]
  - Headache [Unknown]
  - Constipation [Unknown]
